FAERS Safety Report 16080663 (Version 3)
Quarter: 2019Q1

REPORT INFORMATION
  Report Type: Report from Study
  Country: None (occurrence: ES)
  Receive Date: 20190316
  Receipt Date: 20190325
  Transmission Date: 20190418
  Serious: Yes (Death, Hospitalization, Other)
  Sender: FDA-Public Use
  Company Number: ES-ABBVIE-19S-144-2704605-00

PATIENT
  Age: 83 Year
  Sex: Female

DRUGS (1)
  1. DUODOPA [Suspect]
     Active Substance: CARBIDOPA\LEVODOPA
     Indication: PARKINSON^S DISEASE
     Route: 050
     Dates: start: 20080620

REACTIONS (7)
  - Bronchitis [Recovered/Resolved]
  - Dysphagia [Not Recovered/Not Resolved]
  - Aspiration [Fatal]
  - Influenza [Not Recovered/Not Resolved]
  - Increased upper airway secretion [Recovered/Resolved]
  - Vomiting [Unknown]
  - Cognitive disorder [Not Recovered/Not Resolved]

NARRATIVE: CASE EVENT DATE: 201902
